FAERS Safety Report 7555955-3 (Version None)
Quarter: 2011Q2

REPORT INFORMATION
  Report Type: 
  Country: None (occurrence: None)
  Receive Date: 20110619
  Receipt Date: 20110607
  Transmission Date: 20111010
  Serious: Yes (Other)
  Sender: FDA-Public Use
  Company Number: US-ASTRAZENECA-2011SE31349

PATIENT
  Age: 59 Year
  Sex: Female

DRUGS (11)
  1. XANAX [Concomitant]
  2. MUCINEX [Concomitant]
  3. NEXIUM [Suspect]
     Route: 048
  4. LOPRESSOR [Concomitant]
  5. PRILOSEC [Suspect]
     Route: 048
  6. CENTRUM SILVER [Concomitant]
  7. PHENERAGAN [Concomitant]
  8. PRISTIQ [Concomitant]
  9. SINGULAIR [Concomitant]
  10. NEURONTIN [Concomitant]
  11. PRAVACHOL [Concomitant]

REACTIONS (5)
  - MIGRAINE [None]
  - LATEX ALLERGY [None]
  - ABDOMINAL PAIN UPPER [None]
  - TRAUMATIC BRAIN INJURY [None]
  - DRUG HYPERSENSITIVITY [None]
